FAERS Safety Report 4546189-5 (Version None)
Quarter: 2005Q1

REPORT INFORMATION
  Report Type: 
  Country: None (occurrence: None)
  Receive Date: 20050103
  Receipt Date: 20041228
  Transmission Date: 20050727
  Serious: Yes (Hospitalization)
  Sender: FDA-Public Use
  Company Number: 2004AP06380

PATIENT
  Age: 64 Year
  Sex: Male

DRUGS (4)
  1. IRESSA [Suspect]
     Indication: NON-SMALL CELL LUNG CANCER
     Dosage: 250 MG DAILY PO
     Route: 048
     Dates: start: 20041108, end: 20041217
  2. FLUITRAN [Concomitant]
  3. GASTER [Concomitant]
  4. MARZULENE [Concomitant]

REACTIONS (1)
  - CARDIAC FAILURE [None]
